FAERS Safety Report 6026720-3 (Version None)
Quarter: 2008Q4

REPORT INFORMATION
  Report Type: 
  Country: None (occurrence: None)
  Receive Date: 20081222
  Receipt Date: 20081103
  Transmission Date: 20090506
  Serious: No
  Sender: FDA-Public Use
  Company Number: US-WYE-H06658508

PATIENT
  Age: 41 Year
  Sex: Female
  Weight: 49.94 kg

DRUGS (1)
  1. PRISTIQ [Suspect]
     Indication: DEPRESSION
     Dosage: 100 MG 1X PER 1 DAY,ORAL
     Route: 048
     Dates: start: 20081101

REACTIONS (2)
  - NIGHT SWEATS [None]
  - PARAESTHESIA [None]
